FAERS Safety Report 19423017 (Version 1)
Quarter: 2021Q2

REPORT INFORMATION
  Report Type: Report from Study
  Country: US (occurrence: US)
  Receive Date: 20210616
  Receipt Date: 20210616
  Transmission Date: 20210717
  Serious: Yes (Hospitalization)
  Sender: FDA-Public Use
  Company Number: US-MYLANLABS-2021M1034359

PATIENT
  Age: 4 Year
  Sex: Male

DRUGS (6)
  1. NEPHRO?VITE /01801401/ [Suspect]
     Active Substance: ASCORBIC ACID\BIOTIN\CYANOCOBALAMIN\FOLIC ACID\NIACIN\PANTOTHENIC ACID\PYRIDOXINE\RIBOFLAVIN\THIAMINE
     Indication: SUPPLEMENTATION THERAPY
     Dosage: UNK
     Route: 065
  2. SIMILAC [Suspect]
     Active Substance: DEXTROSE\WATER
     Indication: SUPPLEMENTATION THERAPY
     Dosage: PER GASTROSTOMY TUBE (56 KCAL/KG/DAY)
     Route: 065
  3. CALCIUM CARBONATE. [Concomitant]
     Active Substance: CALCIUM CARBONATE
     Indication: SUPPLEMENTATION THERAPY
     Dosage: UNK UNK, QID1250 MG (500 MG ELEMENTAL) 4 TIMES A DAY
     Route: 065
  4. ASCORBIC ACID. [Suspect]
     Active Substance: ASCORBIC ACID
     Indication: SUPPLEMENTATION THERAPY
     Dosage: 15 MILLIGRAM, QD, QUARTER?TABLET DAILY (60 MG VITAMIN C/TABLET)
     Route: 065
  5. ASCORBIC ACID. [Suspect]
     Active Substance: ASCORBIC ACID
     Indication: SUPPLEMENTATION THERAPY
     Dosage: A HALF?CUP OF VITAMIN C?FORTIFIED APPLE SAUCE BY MOUTH DAILY (120 MG VITAMIN C/CUP),
     Route: 048
  6. CALCITRIOL. [Concomitant]
     Active Substance: CALCITRIOL
     Indication: PRODUCT USED FOR UNKNOWN INDICATION
     Dosage: 6 MICROGRAM, 3XWTHREE TIMES A WEEK
     Route: 065

REACTIONS (6)
  - Bone deformity [Unknown]
  - Oxalosis [Unknown]
  - Radius fracture [Unknown]
  - Blood parathyroid hormone increased [Unknown]
  - Ulna fracture [Unknown]
  - Femur fracture [Unknown]
